FAERS Safety Report 13844350 (Version 1)
Quarter: 2017Q3

REPORT INFORMATION
  Report Type: Spontaneous
  Country: US (occurrence: US)
  Receive Date: 20170808
  Receipt Date: 20170808
  Transmission Date: 20171127
  Serious: Yes (Other)
  Sender: FDA-Public Use
  Company Number: US-TEVA-793364USA

PATIENT
  Sex: Female
  Weight: 108.05 kg

DRUGS (1)
  1. ADIPEX-P [Suspect]
     Active Substance: PHENTERMINE HYDROCHLORIDE
     Indication: OBESITY
     Dates: start: 1982, end: 1982

REACTIONS (2)
  - Loss of personal independence in daily activities [Unknown]
  - Mobility decreased [Unknown]
